FAERS Safety Report 26187896 (Version 1)
Quarter: 2025Q4

REPORT INFORMATION
  Report Type: Report from Study
  Country: CO (occurrence: CO)
  Receive Date: 20251222
  Receipt Date: 20251222
  Transmission Date: 20260119
  Serious: Yes (Hospitalization)
  Sender: ASTELLAS
  Company Number: CO-ASTELLAS-2025-AER-070562

PATIENT
  Age: 65 Year
  Sex: Female
  Weight: 55 kg

DRUGS (2)
  1. TACROLIMUS [Suspect]
     Active Substance: TACROLIMUS
     Indication: Renal transplant
     Dosage: THERAPY: TACROLIMUS 5 MG (ONE CAPSULE) AND TACROLIMUS 1 MG (THREE CAPSULES), DAILY DOSE OF 8 MG EVER
     Route: 048
  2. TACROLIMUS [Suspect]
     Active Substance: TACROLIMUS
     Indication: Renal transplant
     Dosage: THERAPY: TACROLIMUS 5 MG (ONE CAPSULE) AND TACROLIMUS 1 MG (THREE CAPSULES), DAILY DOSE OF 8 MG EVER
     Route: 048

REACTIONS (2)
  - Secondary immunodeficiency [Not Recovered/Not Resolved]
  - Urinary tract infection [Not Recovered/Not Resolved]
